FAERS Safety Report 8465324-X (Version None)
Quarter: 2012Q2

REPORT INFORMATION
  Report Type: 
  Country: None (occurrence: None)
  Receive Date: 20120626
  Receipt Date: 20120625
  Transmission Date: 20120825
  Serious: Yes (Other)
  Sender: FDA-Public Use
  Company Number: PHHY2012DE042074

PATIENT
  Sex: Female

DRUGS (5)
  1. DIOVAN HCT [Suspect]
     Dosage: 1 DF, QD (160 MG VALS AND 12.5 MG HYDRO)
     Route: 048
     Dates: start: 20030101
  2. LEVOTHYROXINE [Concomitant]
     Dosage: UNK
  3. CORTISONE ACETATE [Concomitant]
     Dosage: UNK
  4. MAGNESIUM SULFATE [Concomitant]
     Dosage: UNK
  5. DIURETICS [Concomitant]
     Dosage: 1 DF, QW

REACTIONS (4)
  - INITIAL INSOMNIA [None]
  - EMPHYSEMA [None]
  - WEIGHT INCREASED [None]
  - RASH [None]
